FAERS Safety Report 22331909 (Version 1)
Quarter: 2023Q2

REPORT INFORMATION
  Report Type: Spontaneous
  Country: CN (occurrence: None)
  Receive Date: 20230517
  Receipt Date: 20230517
  Transmission Date: 20230722
  Serious: Yes (Hospitalization)
  Sender: FDA-Public Use
  Company Number: CN-Merck Healthcare KGaA-9401391

PATIENT
  Age: 28 Year
  Sex: Female
  Weight: 53 kg

DRUGS (11)
  1. LUVERIS [Suspect]
     Active Substance: LUTROPIN ALFA
     Indication: Ovulation induction
     Route: 058
     Dates: start: 20230416, end: 20230416
  2. FOLLITROPIN BETA [Suspect]
     Active Substance: FOLLITROPIN BETA
     Indication: Ovulation induction
     Route: 058
     Dates: start: 20230406, end: 20230410
  3. FOLLITROPIN BETA [Suspect]
     Active Substance: FOLLITROPIN BETA
     Route: 058
     Dates: start: 20230411, end: 20230413
  4. MENOTROPINS [Suspect]
     Active Substance: MENOTROPINS
     Indication: Ovulation induction
     Route: 030
     Dates: start: 20230411, end: 20230413
  5. MENOTROPINS [Suspect]
     Active Substance: MENOTROPINS
     Route: 030
     Dates: start: 20230416, end: 20230416
  6. MENOTROPINS [Suspect]
     Active Substance: MENOTROPINS
     Route: 030
     Dates: start: 20230417, end: 20230417
  7. CHORIONIC GONADOTROPHIN [Suspect]
     Active Substance: CHORIOGONADOTROPIN ALFA
     Indication: Ovulation induction
     Route: 030
     Dates: start: 20230417, end: 20230417
  8. SODIUM CHLORIDE [Concomitant]
     Active Substance: SODIUM CHLORIDE
     Indication: Vehicle solution use
     Route: 030
     Dates: start: 20230411, end: 20230413
  9. SODIUM CHLORIDE [Concomitant]
     Active Substance: SODIUM CHLORIDE
     Route: 030
     Dates: start: 20230416, end: 20230416
  10. SODIUM CHLORIDE [Concomitant]
     Active Substance: SODIUM CHLORIDE
     Route: 030
     Dates: start: 20230417, end: 20230417
  11. STERILE WATER [Concomitant]
     Active Substance: WATER
     Indication: Vehicle solution use
     Route: 030
     Dates: start: 20230417, end: 20230417

REACTIONS (7)
  - Polycystic ovaries [Recovering/Resolving]
  - Dyspnoea [Recovering/Resolving]
  - Asthenia [Recovering/Resolving]
  - Chest discomfort [Recovering/Resolving]
  - Pallor [Recovering/Resolving]
  - Abdominal pain [Recovering/Resolving]
  - Abdominal distension [Recovering/Resolving]

NARRATIVE: CASE EVENT DATE: 20230419
